FAERS Safety Report 9896307 (Version 2)
Quarter: 2014Q1

REPORT INFORMATION
  Report Type: Spontaneous
  Country: US (occurrence: US)
  Receive Date: 20140213
  Receipt Date: 20140213
  Transmission Date: 20141002
  Serious: No
  Sender: FDA-Public Use
  Company Number: US-BRISTOL-MYERS SQUIBB COMPANY-18827170

PATIENT
  Age: 68 Year
  Sex: Female
  Weight: 48 kg

DRUGS (1)
  1. ABATACEPT SUBQ INJECTION 125MG/ML [Suspect]
     Indication: RHEUMATOID ARTHRITIS
     Dosage: LAST INJECTION WAS ON 17-APR-2013,01-MAY-2013
     Route: 058
     Dates: start: 20130403

REACTIONS (7)
  - Fatigue [Unknown]
  - Hot flush [Unknown]
  - Neck pain [Unknown]
  - Pain [Unknown]
  - Poor quality sleep [Unknown]
  - Mental impairment [Unknown]
  - Drug ineffective [Unknown]
